FAERS Safety Report 7211040-1 (Version None)
Quarter: 2011Q1

REPORT INFORMATION
  Report Type: 
  Country: None (occurrence: None)
  Receive Date: 20110105
  Receipt Date: 20101227
  Transmission Date: 20110831
  Serious: Yes (Hospitalization)
  Sender: FDA-Public Use
  Company Number: US-ABBOTT-10P-163-0694188-00

PATIENT
  Sex: Male
  Weight: 77.18 kg

DRUGS (3)
  1. MULTIPLE VITAMINS [Concomitant]
     Indication: VITAMIN SUPPLEMENTATION
  2. MANY MEDICATIONS [Concomitant]
     Indication: PRODUCT USED FOR UNKNOWN INDICATION
  3. LUPRON DEPOT [Suspect]
     Indication: PROSTATE CANCER
     Dates: start: 20000101, end: 20030101

REACTIONS (7)
  - MOOD SWINGS [None]
  - DIZZINESS [None]
  - GRAND MAL CONVULSION [None]
  - ILL-DEFINED DISORDER [None]
  - PERSONALITY CHANGE [None]
  - FALL [None]
  - AMNESIA [None]
